FAERS Safety Report 19924946 (Version 3)
Quarter: 2024Q3

REPORT INFORMATION
  Report Type: Report from Study
  Country: CA (occurrence: CA)
  Receive Date: 20211006
  Receipt Date: 20240911
  Transmission Date: 20241017
  Serious: Yes (Other)
  Sender: JOHNSON AND JOHNSON
  Company Number: CA-JNJFOC-20210648570

PATIENT
  Age: 5 Year
  Sex: Female
  Weight: 12 kg

DRUGS (4)
  1. REMICADE [Suspect]
     Active Substance: INFLIXIMAB
     Indication: Colitis ulcerative
     Dosage: 5MG/KG 0,2,6 Q6 WEEKS.
     Route: 041
     Dates: start: 20210705
  2. REMICADE [Suspect]
     Active Substance: INFLIXIMAB
     Dosage: 10MG/KG 0,1,4 EVERY 4 WEEKS.
     Route: 041
  3. REMICADE [Suspect]
     Active Substance: INFLIXIMAB
     Route: 041
  4. VEDOLIZUMAB [Concomitant]
     Active Substance: VEDOLIZUMAB
     Indication: Colitis ulcerative
     Route: 065

REACTIONS (4)
  - Haematochezia [Unknown]
  - Frequent bowel movements [Unknown]
  - Off label use [Unknown]
  - Product use issue [Unknown]

NARRATIVE: CASE EVENT DATE: 20210705
